FAERS Safety Report 25878756 (Version 1)
Quarter: 2025Q4

REPORT INFORMATION
  Report Type: Spontaneous
  Country: EU (occurrence: EU)
  Receive Date: 20251003
  Receipt Date: 20251003
  Transmission Date: 20260117
  Serious: Yes (Other)
  Sender: PFIZER
  Company Number: None

PATIENT
  Age: 79 Year
  Sex: Male
  Weight: 71 kg

DRUGS (5)
  1. CARBOPLATIN [Suspect]
     Active Substance: CARBOPLATIN
     Indication: Lung adenocarcinoma
     Dosage: 470 MG, SINGLE
     Route: 042
     Dates: start: 20250603, end: 20250603
  2. CARBOPLATIN [Suspect]
     Active Substance: CARBOPLATIN
     Dosage: 470 MG, SINGLE
     Route: 042
     Dates: start: 20250624, end: 20250624
  3. PEMETREXED [Suspect]
     Active Substance: PEMETREXED
     Indication: Lung adenocarcinoma
     Dosage: 700 MG, SINGLE
     Route: 042
     Dates: start: 20250603, end: 20250603
  4. PEMETREXED [Suspect]
     Active Substance: PEMETREXED
     Dosage: 680 MG, SINGLE
     Route: 042
     Dates: start: 20250624, end: 20250624
  5. AMIVANTAMAB [Suspect]
     Active Substance: AMIVANTAMAB
     Indication: Lung adenocarcinoma
     Dosage: 5250 MG, SINGLE
     Route: 042
     Dates: start: 20250603, end: 20250624

REACTIONS (6)
  - Infusion related reaction [Recovered/Resolved]
  - Rash pustular [Recovering/Resolving]
  - Decreased appetite [Recovering/Resolving]
  - Mucosal inflammation [Recovered/Resolved]
  - Asthenia [Recovering/Resolving]
  - Constipation [Recovered/Resolved]

NARRATIVE: CASE EVENT DATE: 20250603
